FAERS Safety Report 20020643 (Version 1)
Quarter: 2021Q4

REPORT INFORMATION
  Report Type: Spontaneous
  Country: US (occurrence: US)
  Receive Date: 20211101
  Receipt Date: 20211101
  Transmission Date: 20220303
  Serious: Yes (Hospitalization, Other)
  Sender: FDA-Public Use
  Company Number: US-ALEMBIC PHARMACUETICALS LIMITED-2021SCAL000428

PATIENT

DRUGS (1)
  1. LAMOTRIGINE [Suspect]
     Active Substance: LAMOTRIGINE
     Indication: Bipolar disorder
     Dosage: UNK
     Route: 065

REACTIONS (19)
  - Acute kidney injury [Unknown]
  - Proteinuria [Unknown]
  - Lupus nephritis [Unknown]
  - Hypoxia [Unknown]
  - Tachypnoea [Unknown]
  - Haemophagocytic lymphohistiocytosis [Unknown]
  - Pyrexia [Not Recovered/Not Resolved]
  - Rash macular [Unknown]
  - Hypertriglyceridaemia [Unknown]
  - Serum ferritin increased [Unknown]
  - C-reactive protein increased [Unknown]
  - Transaminases increased [Unknown]
  - Fibrin D dimer increased [Unknown]
  - Lupus-like syndrome [Unknown]
  - Dyspnoea [Not Recovered/Not Resolved]
  - Nausea [Not Recovered/Not Resolved]
  - Mouth ulceration [Not Recovered/Not Resolved]
  - Tachycardia [Unknown]
  - Mouth haemorrhage [Unknown]
